FAERS Safety Report 15301146 (Version 8)
Quarter: 2019Q2

REPORT INFORMATION
  Report Type: Spontaneous
  Country: US (occurrence: US)
  Receive Date: 20180821
  Receipt Date: 20190628
  Transmission Date: 20190711
  Serious: Yes (Hospitalization, Other)
  Sender: FDA-Public Use
  Company Number: US-GLAXOSMITHKLINE-US2018GSK151137

PATIENT
  Sex: Male

DRUGS (5)
  1. PREVACID [Suspect]
     Active Substance: LANSOPRAZOLE
     Indication: GASTROOESOPHAGEAL REFLUX DISEASE
     Dosage: UNK
     Route: 065
  2. PREVACID [Suspect]
     Active Substance: LANSOPRAZOLE
     Indication: GASTROOESOPHAGEAL REFLUX DISEASE
     Dosage: UNK
     Route: 065
  3. OMEPRAZOLE. [Suspect]
     Active Substance: OMEPRAZOLE
     Indication: GASTROOESOPHAGEAL REFLUX DISEASE
     Dosage: 40 MG, QD
     Route: 065
  4. OMEPRAZOLE. [Suspect]
     Active Substance: OMEPRAZOLE
     Indication: PRODUCT USED FOR UNKNOWN INDICATION
     Dosage: 20 MG, UNK
     Route: 065
  5. OMEPRAZOLE. [Suspect]
     Active Substance: OMEPRAZOLE
     Dosage: 20 MG, BID
     Route: 048

REACTIONS (21)
  - Focal segmental glomerulosclerosis [Unknown]
  - End stage renal disease [Unknown]
  - Dialysis [Unknown]
  - Proteinuria [Unknown]
  - Renal cyst [Unknown]
  - Renal tubular acidosis [Unknown]
  - Kidney small [Unknown]
  - Renal atrophy [Unknown]
  - Chronic kidney disease [Unknown]
  - Hypertensive nephropathy [Unknown]
  - Kidney infection [Unknown]
  - Nephropathy [Unknown]
  - Urinary hesitation [Unknown]
  - Nephrolithiasis [Unknown]
  - Renal failure [Unknown]
  - Glomerulonephritis membranous [Unknown]
  - Haematuria [Unknown]
  - Haemorrhagic cyst [Unknown]
  - Blood creatinine increased [Unknown]
  - Urinary retention [Unknown]
  - Dysuria [Unknown]
